FAERS Safety Report 6753690-2 (Version None)
Quarter: 2010Q2

REPORT INFORMATION
  Report Type: 
  Country: None (occurrence: None)
  Receive Date: 20100603
  Receipt Date: 20100527
  Transmission Date: 20101027
  Serious: Yes (Death)
  Sender: FDA-Public Use
  Company Number: US-GILEAD-2010-0029298

PATIENT
  Sex: Female
  Weight: 47.67 kg

DRUGS (8)
  1. LETAIRIS [Suspect]
     Indication: PULMONARY ARTERIAL HYPERTENSION
     Route: 048
     Dates: start: 20100303, end: 20100427
  2. WARFARIN [Concomitant]
  3. ASPIRIN [Concomitant]
  4. ATENOLOL [Concomitant]
  5. LISINOPRIL [Concomitant]
  6. ALENDRONATE SODIUM [Concomitant]
  7. NEXIUM [Concomitant]
  8. VITAMIN D [Concomitant]

REACTIONS (2)
  - PULMONARY HYPERTENSION [None]
  - RESPIRATORY ACIDOSIS [None]
